FAERS Safety Report 4955527-0 (Version None)
Quarter: 2006Q1

REPORT INFORMATION
  Report Type: 
  Country: None (occurrence: None)
  Receive Date: 20060328
  Receipt Date: 20060110
  Transmission Date: 20060701
  Serious: Yes (Other)
  Sender: FDA-Public Use
  Company Number: GB-BRISTOL-MYERS SQUIBB COMPANY-13243803

PATIENT
  Age: 72 Year
  Sex: Male
  Weight: 108 kg

DRUGS (7)
  1. KENALOG [Suspect]
     Indication: OSTEOARTHRITIS
     Route: 014
     Dates: start: 20051213, end: 20051213
  2. LISINOPRIL [Concomitant]
     Route: 048
  3. TOLBUTAMIDE [Concomitant]
     Route: 048
  4. AMLODIPINE [Concomitant]
     Route: 048
  5. OMEPRAZOLE [Concomitant]
     Route: 048
  6. WARFARIN [Concomitant]
     Dosage: DOSING: 9 MG OR 10 MG ON ALTERNATIVE DAYS.
     Route: 048
  7. CETIRIZINE [Concomitant]

REACTIONS (4)
  - DRUG INEFFECTIVE [None]
  - PHARMACEUTICAL PRODUCT COMPLAINT [None]
  - RENAL PAIN [None]
  - SCIATICA [None]
